FAERS Safety Report 9596701 (Version 3)
Quarter: 2013Q4

REPORT INFORMATION
  Report Type: Report from Study
  Country: TH (occurrence: TH)
  Receive Date: 20131004
  Receipt Date: 20131030
  Transmission Date: 20140711
  Serious: Yes (Death, Hospitalization)
  Sender: FDA-Public Use
  Company Number: TH-VIIV HEALTHCARE LIMITED-B0903888A

PATIENT
  Age: 43 Year
  Sex: Female
  Weight: 62 kg

DRUGS (5)
  1. MARAVIROC [Suspect]
     Indication: HIV INFECTION
     Dosage: 150MG TWICE PER DAY
     Route: 048
     Dates: start: 20120907
  2. SAQUINAVIR [Concomitant]
     Dosage: 1500MG PER DAY
     Route: 048
     Dates: start: 20090727
  3. RITONAVIR [Concomitant]
     Dosage: 100MG PER DAY
     Route: 048
     Dates: start: 20090727
  4. CALCIUM [Concomitant]
     Indication: OSTEOPOROSIS
     Route: 048
     Dates: start: 20121015
  5. VITAMIN D [Concomitant]
     Indication: OSTEOPOROSIS
     Route: 048
     Dates: start: 20121015

REACTIONS (3)
  - Lymphadenopathy [Not Recovered/Not Resolved]
  - Lung adenocarcinoma stage IV [Fatal]
  - Pneumonia [Not Recovered/Not Resolved]
